FAERS Safety Report 25978199 (Version 2)
Quarter: 2025Q4

REPORT INFORMATION
  Report Type: Spontaneous
  Country: US (occurrence: US)
  Receive Date: 20251030
  Receipt Date: 20251113
  Transmission Date: 20260118
  Serious: Yes (Hospitalization)
  Sender: TEVA
  Company Number: US-TEVA-VS-3384650

PATIENT
  Sex: Female

DRUGS (18)
  1. CLOBAZAM [Interacting]
     Active Substance: CLOBAZAM
     Indication: Idiopathic generalised epilepsy
     Dosage: NIGHTLY; 6 WEEKS POST-INITIAL DOSE
     Route: 065
     Dates: start: 2023, end: 2023
  2. CLOBAZAM [Interacting]
     Active Substance: CLOBAZAM
     Dosage: NIGHTLY; 2 WEEKS POST-INITIAL DOSE
     Route: 065
     Dates: start: 2023, end: 2023
  3. CLOBAZAM [Interacting]
     Active Substance: CLOBAZAM
     Dosage: INITIAL DOSE NIGHTLY
     Route: 065
     Dates: start: 2023, end: 2023
  4. CLOBAZAM [Interacting]
     Active Substance: CLOBAZAM
     Dosage: NIGHTLY; 4 WEEKS POST-INITIAL DOSE
     Route: 065
     Dates: start: 2023, end: 2023
  5. CLOBAZAM [Interacting]
     Active Substance: CLOBAZAM
     Dosage: NIGHTLY; 12 WEEKS POST-INITIAL DOSE
     Route: 065
     Dates: start: 2023, end: 2023
  6. CLOBAZAM [Interacting]
     Active Substance: CLOBAZAM
     Dosage: NIGHTLY; 10 WEEKS POST-INITIAL DOSE
     Route: 065
     Dates: start: 2023, end: 2023
  7. PERAMPANEL [Suspect]
     Active Substance: PERAMPANEL
     Indication: Idiopathic generalised epilepsy
     Route: 065
  8. LACOSAMIDE [Suspect]
     Active Substance: LACOSAMIDE
     Indication: Idiopathic generalised epilepsy
     Route: 065
  9. CENOBAMATE [Interacting]
     Active Substance: CENOBAMATE
     Indication: Idiopathic generalised epilepsy
     Dosage: NIGHTLY
     Route: 065
     Dates: start: 2023, end: 2023
  10. ETHOSUXIMIDE [Suspect]
     Active Substance: ETHOSUXIMIDE
     Indication: Petit mal epilepsy
     Route: 065
  11. LEVETIRACETAM [Suspect]
     Active Substance: LEVETIRACETAM
     Indication: Petit mal epilepsy
     Route: 065
  12. VALPROIC ACID [Suspect]
     Active Substance: VALPROIC ACID
     Indication: Idiopathic generalised epilepsy
     Route: 065
  13. BRIVARACETAM [Suspect]
     Active Substance: BRIVARACETAM
     Indication: Idiopathic generalised epilepsy
     Route: 065
  14. ZONISAMIDE [Suspect]
     Active Substance: ZONISAMIDE
     Indication: Idiopathic generalised epilepsy
     Route: 065
  15. CANNABIDIOL [Suspect]
     Active Substance: CANNABIDIOL
     Indication: Idiopathic generalised epilepsy
     Route: 065
  16. LAMOTRIGINE [Suspect]
     Active Substance: LAMOTRIGINE
     Indication: Idiopathic generalised epilepsy
     Route: 065
  17. DEVICE [Interacting]
     Active Substance: DEVICE
     Route: 065
  18. DEVICE [Interacting]
     Active Substance: DEVICE
     Route: 065

REACTIONS (3)
  - Drug ineffective [Unknown]
  - Somnolence [Recovered/Resolved]
  - Drug interaction [Unknown]

NARRATIVE: CASE EVENT DATE: 20230101
